FAERS Safety Report 4518392-1 (Version None)
Quarter: 2004Q4

REPORT INFORMATION
  Report Type: 
  Country: None (occurrence: None)
  Receive Date: 20041202
  Receipt Date: 20041122
  Transmission Date: 20050328
  Serious: Yes (Life-Threatening)
  Sender: FDA-Public Use
  Company Number: GBWYE231324NOV04

PATIENT
  Age: 53 Year
  Sex: Female

DRUGS (9)
  1. EFEXOR (VENLAFAXINE HYDROCHLORIDE, TABLET, 0) LOT NO.: A63001A [Suspect]
     Indication: DEPRESSION
     Dosage: 75 MG 1X PER 1 TOT, ORAL
     Route: 048
     Dates: start: 20041107, end: 20041107
  2. DOTHIEPIN HYDROCHLORIDE [Concomitant]
  3. LANSOPRAZOLE [Concomitant]
  4. DIHYDROCODEINE (DIHYDROCODEINE) [Concomitant]
  5. BECLOMETHASONE DIPROPIONATE (BECLOMETASONE DIPROPIONATE) [Concomitant]
  6. SALBUTAMOL (SALBUTAMOL) [Concomitant]
  7. LACTULOSE [Concomitant]
  8. ACETAMINOPHEN [Concomitant]
  9. PROMAZINE HCL [Concomitant]

REACTIONS (2)
  - ANGIONEUROTIC OEDEMA [None]
  - DYSPHAGIA [None]
